FAERS Safety Report 21951210 (Version 2)
Quarter: 2023Q1

REPORT INFORMATION
  Report Type: Spontaneous
  Country: US (occurrence: US)
  Receive Date: 20230203
  Receipt Date: 20230206
  Transmission Date: 20230417
  Serious: No
  Sender: FDA-Public Use
  Company Number: US-SA-SAC20230131000216

PATIENT
  Age: 46 Year
  Sex: Female
  Weight: 58.9 kg

DRUGS (1)
  1. DUPIXENT [Suspect]
     Active Substance: DUPILUMAB
     Indication: Dermatitis atopic
     Dosage: 300 MG, QOW
     Route: 058

REACTIONS (9)
  - Injection site pain [Recovered/Resolved]
  - Eyelid skin dryness [Recovering/Resolving]
  - Erythema of eyelid [Recovering/Resolving]
  - Eyelids pruritus [Recovering/Resolving]
  - Injection site swelling [Recovered/Resolved]
  - Injection site erythema [Recovered/Resolved]
  - Injection site pruritus [Recovered/Resolved]
  - Incorrect route of product administration [Unknown]
  - Product storage error [Unknown]

NARRATIVE: CASE EVENT DATE: 20230112
